FAERS Safety Report 9187506 (Version 1)
Quarter: 2013Q1

REPORT INFORMATION
  Report Type: Spontaneous
  Country: US (occurrence: US)
  Receive Date: 20130325
  Receipt Date: 20130325
  Transmission Date: 20140127
  Serious: Yes (Other)
  Sender: FDA-Public Use
  Company Number: US-ASTRAZENECA-2013SE18159

PATIENT
  Sex: Female

DRUGS (2)
  1. CAPRELSA [Suspect]
     Route: 048
  2. CAPRELSA [Suspect]
     Route: 048

REACTIONS (3)
  - Electrocardiogram QT prolonged [Recovered/Resolved]
  - Dry eye [Unknown]
  - Skin hyperpigmentation [Unknown]
